FAERS Safety Report 12905396 (Version 3)
Quarter: 2016Q4

REPORT INFORMATION
  Report Type: Spontaneous
  Country: IT (occurrence: IT)
  Receive Date: 20161103
  Receipt Date: 20161226
  Transmission Date: 20170207
  Serious: Yes (Life-Threatening)
  Sender: FDA-Public Use
  Company Number: IT-ROCHE-1848232

PATIENT
  Age: 77 Year
  Sex: Female
  Weight: 60 kg

DRUGS (5)
  1. LYRICA [Concomitant]
     Active Substance: PREGABALIN
     Indication: NEURALGIA
     Dosage: 56 CAPSULES
     Route: 048
  2. PERJETA [Suspect]
     Active Substance: PERTUZUMAB
     Indication: INVASIVE DUCTAL BREAST CARCINOMA
     Dosage: 420 MG 30 MG/ML (1 VIAL), 4TH CYCLE-DAY 21
     Route: 042
     Dates: start: 20161025, end: 20161025
  3. DIBASE [Concomitant]
     Active Substance: CHOLECALCIFEROL
     Indication: VITAMIN D DEFICIENCY
     Dosage: 10000 IU/ML- DROPPER CONTAINER 10 ML
     Route: 048
  4. METFORMIN HYDROCHLORIDE. [Concomitant]
     Active Substance: METFORMIN HYDROCHLORIDE
     Indication: HYPERGLYCAEMIA
     Route: 048
  5. EUTIROX [Concomitant]
     Active Substance: LEVOTHYROXINE SODIUM
     Indication: HYPOTHYROIDISM
     Dosage: 50 TABLETS
     Route: 048

REACTIONS (6)
  - Cough [Unknown]
  - Hyperglycaemia [Unknown]
  - Dyspnoea [Recovering/Resolving]
  - Diarrhoea [Unknown]
  - Oxygen saturation [Unknown]
  - Hypertension [Unknown]

NARRATIVE: CASE EVENT DATE: 20161025
